FAERS Safety Report 8385475 (Version 3)
Quarter: 2014Q1

REPORT INFORMATION
  Report Type: Spontaneous
  Country: US (occurrence: US)
  Receive Date: 20120202
  Receipt Date: 20140304
  Transmission Date: 20141002
  Serious: Yes (Other)
  Sender: FDA-Public Use
  Company Number: US-ROCHE-783589

PATIENT
  Age: 22 Year
  Sex: Male
  Weight: 120.31 kg

DRUGS (3)
  1. ACCUTANE [Suspect]
     Indication: ACNE
     Route: 065
     Dates: start: 200204, end: 200209
  2. FENTANYL [Concomitant]
  3. WELLBUTRIN [Concomitant]
     Indication: DEPRESSION

REACTIONS (4)
  - Crohn^s disease [Unknown]
  - Inflammatory bowel disease [Unknown]
  - Stress [Unknown]
  - Irritable bowel syndrome [Unknown]
